FAERS Safety Report 6488671-X (Version None)
Quarter: 2009Q4

REPORT INFORMATION
  Report Type: 
  Country: None (occurrence: None)
  Receive Date: 20091210
  Receipt Date: 20091201
  Transmission Date: 20100525
  Serious: Yes (Other)
  Sender: FDA-Public Use
  Company Number: JP-PFIZER INC-2009305972

PATIENT
  Age: 2 Year
  Sex: Female

DRUGS (3)
  1. AZITHROMYCIN [Suspect]
     Indication: MYCOPLASMA INFECTION
     Dosage: 100 MG/DAY
     Route: 048
  2. TACROLIMUS MONOHYDRATE [Interacting]
     Indication: IMMUNOSUPPRESSANT DRUG THERAPY
     Dosage: 2 MG
     Route: 048
  3. PREDNISOLONE [Concomitant]

REACTIONS (2)
  - DRUG INTERACTION [None]
  - DRUG LEVEL INCREASED [None]
